FAERS Safety Report 6964684-6 (Version None)
Quarter: 2010Q3

REPORT INFORMATION
  Report Type: 
  Country: None (occurrence: None)
  Receive Date: 20100903
  Receipt Date: 20100826
  Transmission Date: 20110219
  Serious: Yes (Other)
  Sender: FDA-Public Use
  Company Number: US-PFIZER INC-2010108291

PATIENT
  Sex: Male

DRUGS (3)
  1. VIAGRA [Suspect]
     Dosage: 50 MG, UNK
  2. LISINOPRIL [Suspect]
     Indication: BLOOD PRESSURE
     Dosage: 40 MG, UNK
  3. NEBIVOLOL [Suspect]
     Indication: BLOOD PRESSURE
     Dosage: 5 MG, UNK

REACTIONS (2)
  - DRUG INEFFECTIVE [None]
  - PEYRONIE'S DISEASE [None]
